FAERS Safety Report 9591936 (Version 3)
Quarter: 2014Q1

REPORT INFORMATION
  Report Type: Spontaneous
  Country: US (occurrence: US)
  Receive Date: 20131004
  Receipt Date: 20140228
  Transmission Date: 20141002
  Serious: Yes (Other)
  Sender: FDA-Public Use
  Company Number: US-AMGEN-USASP2013062478

PATIENT
  Age: 32 Year
  Sex: Female
  Weight: 95.69 kg

DRUGS (4)
  1. ENBREL [Suspect]
     Indication: RHEUMATOID ARTHRITIS
     Dosage: 25 MG, UNK
     Route: 058
     Dates: start: 2010
  2. ENBREL [Suspect]
     Dosage: 50 MG, QWK
     Route: 065
     Dates: end: 201302
  3. METHOTREXATE [Concomitant]
     Dosage: 10 MG, WEEKLY (2.5 MG 4 TABLETS WEEKLY)
     Route: 048
     Dates: start: 2010
  4. PREDNISONE [Concomitant]
     Dosage: UNK
     Route: 048

REACTIONS (6)
  - Gastritis bacterial [Recovered/Resolved]
  - Abdominal pain upper [Not Recovered/Not Resolved]
  - Aphagia [Recovered/Resolved]
  - Vomiting [Not Recovered/Not Resolved]
  - Diarrhoea [Not Recovered/Not Resolved]
  - Faeces discoloured [Not Recovered/Not Resolved]
